FAERS Safety Report 5506280-3 (Version None)
Quarter: 2007Q4

REPORT INFORMATION
  Report Type: 
  Country: None (occurrence: None)
  Receive Date: 20071105
  Receipt Date: 20071025
  Transmission Date: 20080405
  Serious: Yes (Other)
  Sender: FDA-Public Use
  Company Number: US-JNJFOC-20071006807

PATIENT
  Sex: Female
  Weight: 49.44 kg

DRUGS (9)
  1. REMICADE [Suspect]
     Indication: COLITIS ULCERATIVE
     Route: 042
  2. IMURAN [Concomitant]
     Indication: COLITIS ULCERATIVE
  3. ASACOL [Concomitant]
     Indication: COLITIS ULCERATIVE
     Route: 048
  4. PREVACID [Concomitant]
  5. VITAMIN D [Concomitant]
     Dosage: 50,000 UNITS
  6. M.V.I. [Concomitant]
  7. CYMBALTA [Concomitant]
     Indication: DEPRESSION
     Route: 048
  8. LOTREL [Concomitant]
     Indication: HYPERTENSION
     Dosage: 5/10
     Route: 048
  9. VESICARE [Concomitant]
     Route: 048

REACTIONS (1)
  - B-CELL LYMPHOMA [None]
